FAERS Safety Report 8799542 (Version 1)
Quarter: 2012Q4

REPORT INFORMATION
  Report Type: 
  Country: US (occurrence: US)
  Receive Date: 20120919
  Receipt Date: 20120919
  Transmission Date: 20130627
  Serious: No
  Sender: FDA-Public Use
  Company Number: US-PFIZER INC-2012230018

PATIENT
  Age: 85 Year
  Sex: Female
  Weight: 90.7 kg

DRUGS (2)
  1. LYRICA [Suspect]
     Indication: FIBROMYALGIA
     Dosage: 50 mg, 2x/day
     Dates: start: 2011
  2. SINEMET [Concomitant]
     Dosage: 25/100 mg, 3X/day

REACTIONS (1)
  - Chest pain [Recovered/Resolved]
